FAERS Safety Report 15112110 (Version 10)
Quarter: 2022Q2

REPORT INFORMATION
  Report Type: Report from Study
  Country: GB (occurrence: GB)
  Receive Date: 20180705
  Receipt Date: 20220627
  Transmission Date: 20220721
  Serious: Yes (Death, Congenital Anomaly, Other)
  Sender: FDA-Public Use
  Company Number: GB-GILEAD-2018-0347708

PATIENT
  Age: 3 Month
  Sex: Male

DRUGS (32)
  1. EMTRICITABINE\TENOFOVIR DISOPROXIL FUMARATE [Suspect]
     Active Substance: EMTRICITABINE\TENOFOVIR DISOPROXIL FUMARATE
     Indication: HIV infection
     Dosage: 1 DOSAGE FORM, QD
     Route: 050
     Dates: start: 20171006, end: 20180205
  2. EMTRICITABINE [Suspect]
     Active Substance: EMTRICITABINE
  3. TRUVADA [Suspect]
     Active Substance: EMTRICITABINE\TENOFOVIR DISOPROXIL FUMARATE
     Indication: HIV infection
     Dosage: 1 DF, QD
     Dates: start: 20171006, end: 20180205
  4. TRUVADA [Suspect]
     Active Substance: EMTRICITABINE\TENOFOVIR DISOPROXIL FUMARATE
     Indication: Foetal exposure during pregnancy
  5. TENOFOVIR DISOPROXIL FUMARATE [Suspect]
     Active Substance: TENOFOVIR DISOPROXIL FUMARATE
     Dosage: 300 MILLIGRAM, QD
     Dates: start: 20100610
  6. EFAVIRENZ [Suspect]
     Active Substance: EFAVIRENZ
     Dosage: 1 DOSAGE FORM, QD
     Dates: start: 20171006, end: 20180205
  7. LEUCOVORIN [Suspect]
     Active Substance: LEUCOVORIN
     Dosage: UNK
     Route: 050
  8. LABETALOL [Suspect]
     Active Substance: LABETALOL\LABETALOL HYDROCHLORIDE
     Indication: Product used for unknown indication
     Dosage: UNK
     Route: 050
  9. LABETALOL [Suspect]
     Active Substance: LABETALOL\LABETALOL HYDROCHLORIDE
     Dosage: UNK
  10. METFORMIN [Suspect]
     Active Substance: METFORMIN HYDROCHLORIDE
     Dosage: UNK
     Route: 050
  11. INSULIN ASPART [Suspect]
     Active Substance: INSULIN ASPART
     Indication: Product used for unknown indication
     Dosage: UNK
     Route: 050
  12. INSULIN ASPART [Suspect]
     Active Substance: INSULIN ASPART
     Dosage: UNK
  13. LAMIVUDINE [Suspect]
     Active Substance: LAMIVUDINE
     Dosage: UNK
     Route: 050
  14. LAMIVUDINE [Suspect]
     Active Substance: LAMIVUDINE
     Dosage: MATERNAL DOSE: 300 MG  ORAL
     Route: 050
     Dates: start: 20090101, end: 20100610
  15. ZIDOVUDINE [Suspect]
     Active Substance: ZIDOVUDINE
     Dosage: MATERNAL DOSE: 800 MG, QD
     Route: 050
     Dates: start: 20100610
  16. ZIDOVUDINE [Suspect]
     Active Substance: ZIDOVUDINE
     Dosage: MATERNAL DOSE: 600 MG, QD
     Route: 050
     Dates: start: 20090110, end: 20100610
  17. NEVIRAPINE [Suspect]
     Active Substance: NEVIRAPINE
     Dosage: UNK
     Route: 050
  18. NEVIRAPINE [Suspect]
     Active Substance: NEVIRAPINE
     Dosage: MATERNAL EXPOSURE: 400 MG, QD
     Route: 050
     Dates: start: 20090101, end: 20100610
  19. LOPINAVIR\RITONAVIR [Suspect]
     Active Substance: LOPINAVIR\RITONAVIR
     Indication: Product used for unknown indication
     Dosage: UNK
     Route: 050
  20. LOPINAVIR\RITONAVIR [Suspect]
     Active Substance: LOPINAVIR\RITONAVIR
     Dosage: MATERNAL DOSE: UNK
     Route: 050
     Dates: end: 20100610
  21. LOPINAVIR\RITONAVIR [Suspect]
     Active Substance: LOPINAVIR\RITONAVIR
     Dosage: MATERNAL DOSE: UNK
     Dates: start: 20100610
  22. LOPINAVIR\RITONAVIR [Suspect]
     Active Substance: LOPINAVIR\RITONAVIR
     Dosage: MATERNAL DOSE: UNK
     Route: 050
     Dates: start: 20200610
  23. VITAMIN B12 [Suspect]
     Active Substance: CYANOCOBALAMIN
     Indication: Foetal exposure during pregnancy
     Dosage: UNK
     Route: 050
  24. VITAMIN B12 [Suspect]
     Active Substance: CYANOCOBALAMIN
     Indication: Product used for unknown indication
     Dosage: MATERNAL DOSE: UNK
     Dates: start: 20100610
  25. INSULIN ASPART [Suspect]
     Active Substance: INSULIN ASPART
     Indication: Foetal exposure during pregnancy
     Dosage: UNK
     Route: 050
  26. FOLATE SODIUM [Suspect]
     Active Substance: FOLATE SODIUM
     Indication: Supplementation therapy
     Dosage: UNK
     Route: 050
  27. FOLATE SODIUM [Suspect]
     Active Substance: FOLATE SODIUM
     Dosage: UNK
  28. KALETRA [Suspect]
     Active Substance: LOPINAVIR\RITONAVIR
     Indication: Foetal exposure during pregnancy
     Dosage: MATERNAL DOSE: UNK
     Dates: start: 20100610
  29. KALETRA [Suspect]
     Active Substance: LOPINAVIR\RITONAVIR
     Indication: Product used for unknown indication
  30. FOLIC ACID [Suspect]
     Active Substance: FOLIC ACID
  31. ISENTRESS [Suspect]
     Active Substance: RALTEGRAVIR POTASSIUM
     Indication: Product used for unknown indication
     Dosage: MATERNAL DOSE: 3200 MG, QD (800 MILLIGRAM, QID)
     Dates: start: 20100610
  32. FOLATE SODIUM [Suspect]
     Active Substance: FOLATE SODIUM
     Indication: Supplementation therapy
     Dosage: UNK

REACTIONS (23)
  - Trisomy 18 [Fatal]
  - Hydrops foetalis [Fatal]
  - Cleft lip and palate [Fatal]
  - Ultrasound antenatal screen [Unknown]
  - Foetal exposure during pregnancy [Fatal]
  - Trisomy 18 [Fatal]
  - Hydrops foetalis [Fatal]
  - Foetal exposure during pregnancy [Fatal]
  - Trisomy 18 [Fatal]
  - Cleft lip and palate [Unknown]
  - Hydrops foetalis [Fatal]
  - Abortion spontaneous [Fatal]
  - Foetal exposure during pregnancy [Fatal]
  - Foetal exposure during pregnancy [Fatal]
  - Trisomy 18 [Fatal]
  - Trisomy 18 [Fatal]
  - Abortion spontaneous [Fatal]
  - Ultrasound antenatal screen [Fatal]
  - Hydrops foetalis [Fatal]
  - Foetal exposure during pregnancy [Fatal]
  - Abortion spontaneous [Fatal]
  - Cleft lip and palate [Fatal]
  - Trisomy 18 [Fatal]

NARRATIVE: CASE EVENT DATE: 20171006
